FAERS Safety Report 8910672 (Version 1)
Quarter: 2012Q4

REPORT INFORMATION
  Report Type: Spontaneous
  Country: GB (occurrence: None)
  Receive Date: 20121108
  Receipt Date: 20121108
  Transmission Date: 20130627
  Serious: Yes (Other)
  Sender: FDA-Public Use
  Company Number: GER/UKI/12/0026547

PATIENT
  Age: 59 Year
  Sex: Male

DRUGS (1)
  1. TERBINAFINE [Suspect]
     Indication: FUNGAL INFECTION
     Route: 048
     Dates: start: 20120808, end: 20120913

REACTIONS (3)
  - Ageusia [None]
  - Decreased appetite [None]
  - Quality of life decreased [None]
